FAERS Safety Report 7986855-2 (Version None)
Quarter: 2011Q4

REPORT INFORMATION
  Report Type: 
  Country: None (occurrence: None)
  Receive Date: 20111216
  Receipt Date: 20110228
  Transmission Date: 20120403
  Serious: No
  Sender: FDA-Public Use
  Company Number: US-BRISTOL-MYERS SQUIBB COMPANY-15575806

PATIENT
  Age: 46 Year
  Sex: Female

DRUGS (3)
  1. HYDROXYZINE [Suspect]
  2. PROZAC [Suspect]
     Dosage: INITIALL TAKEN 60MG,THEN REDUCED TO 40MG,THEN 20MG.
  3. ABILIFY [Suspect]
     Dosage: INITIALLY TAKEN 2MG,THEN INCREASED TO 5MG.
     Dates: start: 20110118

REACTIONS (1)
  - DYSKINESIA [None]
